FAERS Safety Report 5664609-X (Version None)
Quarter: 2008Q1

REPORT INFORMATION
  Report Type: 
  Country: None (occurrence: None)
  Receive Date: 20080314
  Receipt Date: 20080128
  Transmission Date: 20080703
  Serious: Yes (Death)
  Sender: FDA-Public Use
  Company Number: US-TYCO HEALTHCARE/MALLINCKRODT-T200800350

PATIENT

DRUGS (10)
  1. OXYCODONE HCL [Suspect]
     Route: 048
  2. CALCIUM ANTAGONIST [Suspect]
     Route: 048
  3. ANTIPSYCHOTICS [Suspect]
     Route: 048
  4. AMITRIPTYLINE HCL [Suspect]
     Route: 048
  5. BUSPIRONE HCL [Suspect]
     Route: 048
  6. COX-2 INHIBITOR [Suspect]
     Route: 048
  7. HYDROCHLOROTHIAZIDE [Suspect]
     Route: 048
  8. ANTIHYPERLIPIDEMIC [Suspect]
     Route: 048
  9. ANTIHISTAMINES [Suspect]
     Route: 048
  10. CLONAZEPAM [Suspect]
     Route: 048

REACTIONS (1)
  - COMPLETED SUICIDE [None]
